FAERS Safety Report 8979720 (Version 1)
Quarter: 2012Q4

REPORT INFORMATION
  Report Type: 
  Country: JP (occurrence: JP)
  Receive Date: 20121221
  Receipt Date: 20121221
  Transmission Date: 20130627
  Serious: Yes (Death)
  Sender: FDA-Public Use
  Company Number: JP-ASTELLAS-2012JP011927

PATIENT
  Age: 2 Month

DRUGS (9)
  1. PROGRAF [Suspect]
     Indication: IMMUNOSUPPRESSANT DRUG THERAPY
     Route: 065
  2. HEPARIN [Concomitant]
     Dosage: UNK
     Route: 042
  3. HEPARIN [Concomitant]
     Route: 042
  4. ANTIPLATELET AGGREGATION DRUGS [Concomitant]
     Route: 048
  5. METHYLPREDNISOLONE [Concomitant]
     Indication: IMMUNOSUPPRESSANT DRUG THERAPY
     Dosage: 10 mg/kg, Unknown/D
     Route: 065
  6. METHYLPREDNISOLONE [Concomitant]
     Dosage: 1 mg/kg, Unknown/D
     Route: 065
  7. METHYLPREDNISOLONE [Concomitant]
     Dosage: 0.5 mg/kg, Unknown/D
     Route: 065
  8. METHYLPREDNISOLONE [Concomitant]
     Dosage: 0.3 mg/kg, Unknown/D
     Route: 065
  9. PREDNISOLONE [Concomitant]
     Indication: IMMUNOSUPPRESSANT DRUG THERAPY
     Dosage: 0.3 mg/kg, Unknown/D
     Route: 048

REACTIONS (2)
  - Drug ineffective [Unknown]
  - Liver transplant rejection [Fatal]
